FAERS Safety Report 14583821 (Version 1)
Quarter: 2018Q1

REPORT INFORMATION
  Report Type: Spontaneous
  Country: US (occurrence: US)
  Receive Date: 20180228
  Receipt Date: 20180228
  Transmission Date: 20180509
  Serious: No
  Sender: FDA-Public Use
  Company Number: US-SA-2017SA268919

PATIENT

DRUGS (1)
  1. DIABETA [Suspect]
     Active Substance: GLYBURIDE
     Route: 065

REACTIONS (2)
  - Somnolence [Unknown]
  - Pain [Unknown]
